FAERS Safety Report 17810559 (Version 2)
Quarter: 2020Q2

REPORT INFORMATION
  Report Type: Spontaneous
  Country: US (occurrence: US)
  Receive Date: 20200521
  Receipt Date: 20200622
  Transmission Date: 20200714
  Serious: Yes (Other)
  Sender: FDA-Public Use
  Company Number: US-LUPIN PHARMACEUTICALS INC.-2020-02286

PATIENT

DRUGS (1)
  1. POTASSIUM CHLORIDE EXTENDED RELEASETABLETS 20 MEQK [Suspect]
     Active Substance: POTASSIUM CHLORIDE
     Indication: PRODUCT USED FOR UNKNOWN INDICATION
     Dosage: 20 MEQK, QD
     Route: 048
     Dates: start: 20200424, end: 20200505

REACTIONS (5)
  - Product coating issue [Unknown]
  - Product solubility abnormal [Unknown]
  - Product quality issue [Unknown]
  - Near death experience [Recovered/Resolved]
  - Choking [Recovered/Resolved]
